FAERS Safety Report 18224904 (Version 1)
Quarter: 2020Q3

REPORT INFORMATION
  Report Type: Spontaneous
  Country: AR (occurrence: AR)
  Receive Date: 20200903
  Receipt Date: 20200903
  Transmission Date: 20201103
  Serious: Yes (Death)
  Sender: FDA-Public Use
  Company Number: AR-AMGEN-ARGSP2020118445

PATIENT
  Age: 72 Year
  Sex: Male

DRUGS (1)
  1. ENBREL [Suspect]
     Active Substance: ETANERCEPT
     Indication: PSORIATIC ARTHROPATHY
     Dosage: 50 MG EVERY 10 DAYS
     Route: 065
     Dates: start: 20110808

REACTIONS (5)
  - Renal disorder [Unknown]
  - Off label use [Unknown]
  - Infarction [Fatal]
  - Prostatic disorder [Unknown]
  - Body temperature increased [Unknown]

NARRATIVE: CASE EVENT DATE: 20110808
